FAERS Safety Report 4582061-2 (Version None)
Quarter: 2005Q1

REPORT INFORMATION
  Report Type: 
  Country: None (occurrence: None)
  Receive Date: 20050214
  Receipt Date: 20041229
  Transmission Date: 20050727
  Serious: Yes (Death, Life-Threatening, Other)
  Sender: FDA-Public Use
  Company Number: JP-MERCK-0412USA03163

PATIENT
  Age: 60 Year
  Sex: Male
  Weight: 66 kg

DRUGS (4)
  1. PRIMAXIN [Suspect]
     Indication: POSTOPERATIVE INFECTION
     Route: 041
     Dates: start: 20041222, end: 20041224
  2. PRIMAXIN [Suspect]
     Route: 041
     Dates: start: 20041229, end: 20050102
  3. CEFAMEZIN [Concomitant]
     Indication: POSTOPERATIVE INFECTION
     Route: 051
     Dates: start: 20041213, end: 20041218
  4. CEFAMEZIN [Concomitant]
     Route: 051
     Dates: start: 20041213, end: 20041218

REACTIONS (7)
  - CEREBRAL HAEMORRHAGE [None]
  - DIALYSIS [None]
  - LIVER DISORDER [None]
  - PNEUMONIA STAPHYLOCOCCAL [None]
  - PYREXIA [None]
  - RENAL FAILURE ACUTE [None]
  - SEPSIS [None]
